FAERS Safety Report 19477284 (Version 1)
Quarter: 2021Q2

REPORT INFORMATION
  Report Type: Spontaneous
  Country: DE (occurrence: DE)
  Receive Date: 20210630
  Receipt Date: 20210630
  Transmission Date: 20210717
  Serious: Yes (Other)
  Sender: FDA-Public Use
  Company Number: DE-TORRENT-00020534

PATIENT
  Sex: Male

DRUGS (5)
  1. CORTISON [Concomitant]
     Active Substance: CORTISONE ACETATE
     Indication: POLYMYALGIA RHEUMATICA
     Dosage: UNKNOWN
  2. PANTOPRAZOL NYC [Suspect]
     Active Substance: PANTOPRAZOLE SODIUM
     Indication: GASTROOESOPHAGEAL REFLUX PROPHYLAXIS
     Dosage: UNKNOWN
  3. PANTOPRAZOL?RATIOPHARM 20MG [Suspect]
     Active Substance: PANTOPRAZOLE SODIUM
     Indication: GASTROOESOPHAGEAL REFLUX PROPHYLAXIS
     Dosage: UNKNOWN
  4. VITAMIN B1 [Suspect]
     Active Substance: THIAMINE HYDROCHLORIDE
     Indication: MUSCLE DISCOMFORT
  5. PANTOPRAZOLE [Suspect]
     Active Substance: PANTOPRAZOLE
     Indication: PROPHYLAXIS
     Dosage: UNKNOWN

REACTIONS (7)
  - Muscle strength abnormal [Unknown]
  - Muscle atrophy [Unknown]
  - Arthropathy [Unknown]
  - Mobility decreased [Unknown]
  - Malabsorption [Unknown]
  - Tendon rupture [Unknown]
  - Vitamin B1 deficiency [Unknown]

NARRATIVE: CASE EVENT DATE: 2018
